FAERS Safety Report 18044149 (Version 2)
Quarter: 2021Q4

REPORT INFORMATION
  Report Type: Other
  Country: US (occurrence: None)
  Receive Date: 20200720
  Receipt Date: 20211125
  Transmission Date: 20220303
  Serious: Yes (Hospitalization)
  Sender: FDA-Public Use
  Company Number: US-ROCHE-2631957

PATIENT
  Age: 60 Year
  Sex: Female
  Weight: 56.296 kg

DRUGS (7)
  1. RITUXAN [Suspect]
     Active Substance: RITUXIMAB
     Indication: Demyelination
     Dosage: ONGOING: YES, 6 MONTHS
     Route: 041
     Dates: start: 20190131
  2. RITUXAN [Suspect]
     Active Substance: RITUXIMAB
     Indication: Demyelination
  3. RITUXAN [Suspect]
     Active Substance: RITUXIMAB
     Indication: Multiple sclerosis
  4. GABAPENTIN [Concomitant]
     Active Substance: GABAPENTIN
     Indication: Neuralgia
  5. BACLOFEN [Concomitant]
     Active Substance: BACLOFEN
  6. DULOXETINE [Concomitant]
     Active Substance: DULOXETINE
     Indication: Neuralgia
     Dosage: ONGOING: YES
     Dates: start: 20200131
  7. CELECOXIB [Concomitant]
     Active Substance: CELECOXIB
     Indication: Neuralgia
     Dosage: ONGOING: YES
     Dates: start: 20200131

REACTIONS (3)
  - Oxygen saturation decreased [Recovered/Resolved]
  - Neuralgia [Not Recovered/Not Resolved]
  - Off label use [Unknown]

NARRATIVE: CASE EVENT DATE: 20191101
